FAERS Safety Report 8060221-6 (Version None)
Quarter: 2012Q1

REPORT INFORMATION
  Report Type: 
  Country: None (occurrence: None)
  Receive Date: 20120120
  Receipt Date: 20111011
  Transmission Date: 20120608
  Serious: No
  Sender: FDA-Public Use
  Company Number: US-NOVEN-11US003407

PATIENT
  Sex: Female
  Weight: 50.34 kg

DRUGS (10)
  1. XANAX [Concomitant]
     Route: 048
  2. FENTANYL [Suspect]
     Indication: PAIN
     Dosage: 100 UG/HR, Q48 HRS
     Route: 062
  3. VICODIN [Concomitant]
     Route: 048
  4. PLAVIX [Concomitant]
     Route: 048
  5. MIRTAZAPINE [Concomitant]
     Route: 048
  6. METOPROLOL TARTRATE [Concomitant]
  7. ASPIRIN [Concomitant]
     Route: 048
  8. AMITRIPTYLINE HCL [Concomitant]
     Route: 048
  9. PRAVASTATIN [Concomitant]
     Route: 048
  10. NEXIUM [Concomitant]
     Route: 048

REACTIONS (2)
  - FEELING HOT [None]
  - INADEQUATE ANALGESIA [None]
